FAERS Safety Report 5789339-5 (Version None)
Quarter: 2008Q2

REPORT INFORMATION
  Report Type: 
  Country: None (occurrence: None)
  Receive Date: 20080626
  Receipt Date: 20080616
  Transmission Date: 20081010
  Serious: Yes (Life-Threatening, Hospitalization, Disabling)
  Sender: FDA-Public Use
  Company Number: US-MERCK-0806USA01363

PATIENT
  Age: 58 Year
  Sex: Male

DRUGS (4)
  1. ISENTRESS [Suspect]
     Indication: HIV INFECTION
     Route: 065
     Dates: start: 20080407, end: 20080428
  2. VIRACEPT [Concomitant]
     Route: 065
  3. VIREAD [Concomitant]
     Route: 065
  4. COMBIVIR [Concomitant]
     Route: 065

REACTIONS (3)
  - BLOOD OSMOLARITY DECREASED [None]
  - DIZZINESS [None]
  - HYPONATRAEMIA [None]
